FAERS Safety Report 6249216-2 (Version None)
Quarter: 2009Q2

REPORT INFORMATION
  Report Type: 
  Country: None (occurrence: None)
  Receive Date: 20090624
  Receipt Date: 20090624
  Transmission Date: 20091009
  Serious: No
  Sender: FDA-Public Use
  Company Number: None

PATIENT
  Sex: Male
  Weight: 71.6683 kg

DRUGS (2)
  1. ENBREL [Suspect]
     Indication: PSORIASIS
     Dosage: 50 MG/ML 1 INJECTION WEEKLY SQ
     Route: 058
     Dates: start: 20070320, end: 20070531
  2. ENBREL [Suspect]
     Indication: PSORIATIC ARTHROPATHY
     Dosage: 50 MG/ML 1 INJECTION WEEKLY SQ
     Route: 058
     Dates: start: 20070320, end: 20070531

REACTIONS (1)
  - TYPE 1 DIABETES MELLITUS [None]
